FAERS Safety Report 7907332-0 (Version None)
Quarter: 2011Q4

REPORT INFORMATION
  Report Type: 
  Country: None (occurrence: None)
  Receive Date: 20111110
  Receipt Date: 20111103
  Transmission Date: 20120403
  Serious: Yes (Hospitalization)
  Sender: FDA-Public Use
  Company Number: FR-GLAXOSMITHKLINE-B0760305A

PATIENT
  Sex: Female

DRUGS (4)
  1. LAMICTAL [Suspect]
     Indication: EPILEPSY
     Dosage: 150MG TWICE PER DAY
     Route: 065
  2. OESTROPROGESTATIVE CONTRACEPTION [Concomitant]
     Indication: CONTRACEPTION
     Route: 065
  3. ZONEGRAN [Concomitant]
     Indication: EPILEPSY
     Dosage: 100MG TWICE PER DAY
     Route: 065
  4. URBANYL [Concomitant]
     Indication: EPILEPSY
     Dosage: 10MG TWICE PER DAY
     Route: 065

REACTIONS (4)
  - MATERNAL EXPOSURE DURING PREGNANCY [None]
  - LOSS OF CONSCIOUSNESS [None]
  - CONVULSION [None]
  - PREMATURE LABOUR [None]
